FAERS Safety Report 23786757 (Version 2)
Quarter: 2024Q2

REPORT INFORMATION
  Report Type: Spontaneous
  Country: US (occurrence: US)
  Receive Date: 20240426
  Receipt Date: 20240526
  Transmission Date: 20240716
  Serious: No
  Sender: FDA-Public Use
  Company Number: US-MTPC-MTDA2024-0008901

PATIENT
  Age: 71 Year
  Sex: Male

DRUGS (2)
  1. RADICAVA ORS [Suspect]
     Active Substance: EDARAVONE
     Indication: Amyotrophic lateral sclerosis
     Dosage: UNK, FOR 10 OUT OF 14 DAYS FOLLOWED BY 14 DAYS DRUG FREE
     Route: 065
  2. RADICAVA ORS [Suspect]
     Active Substance: EDARAVONE
     Indication: Amyotrophic lateral sclerosis
     Dosage: UNK, FOR 10 OUT OF 14 DAYS FOLLOWED BY 14 DAYS DRUG FREE
     Route: 065

REACTIONS (3)
  - Hyperhidrosis [Recovering/Resolving]
  - Lip swelling [Recovered/Resolved]
  - Erythema [Recovering/Resolving]

NARRATIVE: CASE EVENT DATE: 20240401
